FAERS Safety Report 8091473-4 (Version None)
Quarter: 2012Q1

REPORT INFORMATION
  Report Type: 
  Country: None (occurrence: None)
  Receive Date: 20120129
  Receipt Date: 20111122
  Transmission Date: 20120608
  Serious: No
  Sender: FDA-Public Use
  Company Number: US-ABBOTT-09P-163-0599243-00

PATIENT
  Sex: Female

DRUGS (5)
  1. ACCUPRIL [Concomitant]
     Indication: HYPERTENSION
     Route: 048
  2. UNKNOWN BLOOD PRESSURE MEDICATION [Concomitant]
     Indication: HYPERTENSION
  3. METHOTREXATE [Concomitant]
     Indication: ANKYLOSING SPONDYLITIS
     Route: 048
  4. HUMIRA [Suspect]
     Indication: ANKYLOSING SPONDYLITIS
     Route: 058
     Dates: start: 20080201
  5. LEXAPRO [Concomitant]
     Indication: PRODUCT USED FOR UNKNOWN INDICATION
     Route: 048

REACTIONS (6)
  - PRURITUS [None]
  - VASCULAR RUPTURE [None]
  - SKIN DISCOLOURATION [None]
  - FATIGUE [None]
  - RASH MACULAR [None]
  - ALOPECIA [None]
